FAERS Safety Report 10262330 (Version 1)
Quarter: 2014Q2

REPORT INFORMATION
  Report Type: Report from Study
  Country: PK (occurrence: PK)
  Receive Date: 20140626
  Receipt Date: 20140626
  Transmission Date: 20141212
  Serious: Yes (Other)
  Sender: FDA-Public Use
  Company Number: PK-B.I. PHARMACEUTICALS,INC./RIDGEFIELD-2014-BI-28484GD

PATIENT
  Sex: 0

DRUGS (7)
  1. CLONIDINE [Suspect]
     Indication: HAEMODYNAMIC INSTABILITY
     Dosage: 0.2 MG
     Route: 048
  2. FENTANYL [Suspect]
     Indication: HAEMODYNAMIC INSTABILITY
     Dosage: 2 MCG/KG 90 MIN PRIOR TO SURGERY
     Route: 042
  3. FENTANYL [Suspect]
     Indication: INDUCTION OF ANAESTHESIA
     Dosage: 2 MCG/KG FOR INDUCTION OF ANAESTHESIA
     Route: 042
  4. FENTANYL [Suspect]
     Indication: ENDOTRACHEAL INTUBATION
  5. MIDAZOLAM [Concomitant]
     Indication: PREMEDICATION
     Dosage: 7.5 MG
     Route: 048
  6. THIOPENTONE [Concomitant]
     Indication: ENDOTRACHEAL INTUBATION
     Dosage: 5 MG/KG
     Route: 042
  7. ATRACURIUM [Concomitant]
     Indication: ENDOTRACHEAL INTUBATION
     Dosage: 0.5 MG/KG
     Route: 042

REACTIONS (2)
  - Blood pressure increased [Recovered/Resolved]
  - Heart rate increased [Recovered/Resolved]
